FAERS Safety Report 6484924-X (Version None)
Quarter: 2009Q4

REPORT INFORMATION
  Report Type: 
  Country: None (occurrence: None)
  Receive Date: 20091209
  Receipt Date: 20091207
  Transmission Date: 20100525
  Serious: Yes (Death, Other)
  Sender: FDA-Public Use
  Company Number: DE-WYE-G04943309

PATIENT
  Sex: Female
  Weight: 102 kg

DRUGS (14)
  1. TYGACIL [Suspect]
     Indication: SYSTEMIC INFLAMMATORY RESPONSE SYNDROME
     Route: 042
     Dates: start: 20091003, end: 20091003
  2. TYGACIL [Suspect]
     Indication: INFECTION
     Route: 042
     Dates: start: 20091004, end: 20091020
  3. SILDENAFIL [Concomitant]
  4. NOREPINEPHRINE BITARTRATE [Concomitant]
  5. GENTAMICIN [Concomitant]
     Indication: SYSTEMIC INFLAMMATORY RESPONSE SYNDROME
     Route: 042
     Dates: start: 20091003, end: 20091012
  6. GENTAMICIN [Concomitant]
     Indication: INFECTION
  7. OMEPRAZOLE [Concomitant]
  8. LIOTHYRONINE SODIUM [Concomitant]
  9. TAZOBACTAM [Concomitant]
     Indication: SYSTEMIC INFLAMMATORY RESPONSE SYNDROME
     Route: 042
     Dates: start: 20090926, end: 20091003
  10. TAZOBACTAM [Concomitant]
     Indication: INFECTION
  11. LINEZOLID [Concomitant]
     Indication: SYSTEMIC INFLAMMATORY RESPONSE SYNDROME
     Route: 042
     Dates: start: 20091003, end: 20091020
  12. LINEZOLID [Concomitant]
     Indication: INFECTION
  13. ARGATROBAN [Concomitant]
  14. ILOMEDIN [Concomitant]

REACTIONS (4)
  - ANURIA [None]
  - CIRCULATORY COLLAPSE [None]
  - HEPATIC FUNCTION ABNORMAL [None]
  - SEPSIS [None]
